FAERS Safety Report 25922536 (Version 1)
Quarter: 2025Q4

REPORT INFORMATION
  Report Type: Spontaneous
  Country: US (occurrence: US)
  Receive Date: 20251015
  Receipt Date: 20251015
  Transmission Date: 20260117
  Serious: No
  Sender: IPSEN BIOPHARMACEUTICALS, INC.
  Company Number: US-IPSEN Group, Research and Development-2025-25319

PATIENT
  Sex: Female

DRUGS (5)
  1. IQIRVO [Suspect]
     Active Substance: ELAFIBRANOR
     Indication: Primary biliary cholangitis
     Dosage: TAKE 1 TAB BY MOUTH DAILY
     Route: 048
     Dates: start: 20250814
  2. FLUCONAZOLE [Concomitant]
     Active Substance: FLUCONAZOLE
  3. FLUTICASONE [Concomitant]
     Active Substance: FLUTICASONE
  4. NYSTATIN [Concomitant]
     Active Substance: NYSTATIN
     Dosage: 100000
  5. PREDNISOLONE [Concomitant]
     Active Substance: PREDNISOLONE

REACTIONS (3)
  - Nausea [Not Recovered/Not Resolved]
  - Vomiting [Not Recovered/Not Resolved]
  - Product dose omission issue [Unknown]
